FAERS Safety Report 11758432 (Version 2)
Quarter: 2016Q1

REPORT INFORMATION
  Report Type: Report from Study
  Country: GB (occurrence: GB)
  Receive Date: 20151120
  Receipt Date: 20160212
  Transmission Date: 20160525
  Serious: Yes (Death)
  Sender: FDA-Public Use
  Company Number: GB-JNJFOC-20151119305

PATIENT
  Age: 70 Year
  Sex: Male

DRUGS (4)
  1. IBRUTINIB [Suspect]
     Active Substance: IBRUTINIB
     Indication: CHRONIC LYMPHOCYTIC LEUKAEMIA
     Route: 048
     Dates: start: 20140801, end: 20150123
  2. PREDNISOLONE. [Concomitant]
     Active Substance: PREDNISOLONE
     Indication: IMMUNE THROMBOCYTOPENIC PURPURA
     Route: 048
     Dates: start: 20150123, end: 20150414
  3. RITUXIMAB [Concomitant]
     Active Substance: RITUXIMAB
     Indication: IMMUNE THROMBOCYTOPENIC PURPURA
     Route: 042
     Dates: start: 20150123, end: 20150223
  4. AZATHIOPRINE. [Concomitant]
     Active Substance: AZATHIOPRINE
     Indication: CEREBROVASCULAR ACCIDENT
     Route: 048
     Dates: start: 20150123, end: 20150414

REACTIONS (2)
  - Squamous cell carcinoma of lung [Fatal]
  - Bronchial carcinoma [Fatal]

NARRATIVE: CASE EVENT DATE: 20150320
